FAERS Safety Report 7811944-2 (Version None)
Quarter: 2011Q4

REPORT INFORMATION
  Report Type: 
  Country: None (occurrence: None)
  Receive Date: 20111013
  Receipt Date: 20111010
  Transmission Date: 20120403
  Serious: Yes (Hospitalization)
  Sender: FDA-Public Use
  Company Number: PHHY2011KR38285

PATIENT
  Sex: Male
  Weight: 68 kg

DRUGS (5)
  1. NEUTROGIN [Concomitant]
     Indication: NEUTROPENIA
     Dosage: 250 UG
     Dates: start: 20110602, end: 20110602
  2. MEGESTROL ACETATE [Concomitant]
     Indication: DECREASED APPETITE
     Dosage: 20 ML, UNK
     Dates: start: 20110630
  3. EXJADE [Suspect]
     Indication: ACUTE MYELOID LEUKAEMIA
     Dosage: 1000 MG, DAILY
     Route: 048
     Dates: start: 20110309, end: 20110722
  4. DIAMICRON [Concomitant]
     Indication: DIABETES MELLITUS
     Dosage: 80 MG
     Dates: start: 20110502
  5. URSA [Concomitant]
     Indication: LIVER DISORDER
     Dosage: 600 MG
     Dates: start: 20110515

REACTIONS (2)
  - ASTHENIA [None]
  - PHARYNGITIS [None]
